FAERS Safety Report 13262272 (Version 1)
Quarter: 2017Q1

REPORT INFORMATION
  Report Type: Report from Study
  Country: GB (occurrence: GB)
  Receive Date: 20170222
  Receipt Date: 20170222
  Transmission Date: 20170428
  Serious: Yes (Other)
  Sender: FDA-Public Use
  Company Number: GB-ROCHE-1895279

PATIENT

DRUGS (2)
  1. GEMCITABINE [Suspect]
     Active Substance: GEMCITABINE\GEMCITABINE HYDROCHLORIDE
     Indication: PANCREATIC CARCINOMA
     Dosage: INFUSION ADMINISTERED ONCE A WEEK FOR THREE OF EVERY 4 WEEKS (ONE CYCLE) FOR SIX CYCLES (24 WEEKS).
     Route: 042
  2. CAPECITABINE. [Suspect]
     Active Substance: CAPECITABINE
     Indication: PANCREATIC CARCINOMA
     Dosage: 21 DAYS FOLLOWED BY 7 DAYS REST (ONE CYCLE) FOR SIX CYCLES (24 WEEKS) AT A DAILY DOSE OF 1660 MG/M2.
     Route: 048

REACTIONS (13)
  - Anaemia [Unknown]
  - Fatigue [Unknown]
  - Neoplasm [Unknown]
  - Infection [Unknown]
  - Lymphocyte count decreased [Unknown]
  - Embolism [Unknown]
  - Diarrhoea [Unknown]
  - Pyrexia [Unknown]
  - Infestation [Unknown]
  - Palmar-plantar erythrodysaesthesia syndrome [Unknown]
  - Platelet disorder [Unknown]
  - Neutropenia [Unknown]
  - White blood cell count decreased [Unknown]
